FAERS Safety Report 6023838-6 (Version None)
Quarter: 2008Q4

REPORT INFORMATION
  Report Type: 
  Country: None (occurrence: None)
  Receive Date: 20081230
  Receipt Date: 20081202
  Transmission Date: 20090506
  Serious: Yes (Other)
  Sender: FDA-Public Use
  Company Number: CA-PFIZER INC-2008154037

PATIENT

DRUGS (1)
  1. CHAMPIX [Suspect]
     Route: 048
     Dates: start: 20080201

REACTIONS (5)
  - AGGRESSION [None]
  - FALL [None]
  - HYPERTENSION [None]
  - PHYSICAL ASSAULT [None]
  - SUICIDAL IDEATION [None]
